FAERS Safety Report 18676167 (Version 1)
Quarter: 2020Q4

REPORT INFORMATION
  Report Type: Spontaneous
  Country: US (occurrence: US)
  Receive Date: 20201229
  Receipt Date: 20201229
  Transmission Date: 20210114
  Serious: No
  Sender: FDA-Public Use
  Company Number: US-BAYER-2020-284877

PATIENT
  Sex: Female

DRUGS (1)
  1. KYLEENA [Suspect]
     Active Substance: LEVONORGESTREL
     Dosage: 17,5 G PER DAY CONTINUOUSLY
     Route: 015
     Dates: start: 201811, end: 20200206

REACTIONS (2)
  - Acne [None]
  - Vaginal discharge [None]
